FAERS Safety Report 15575490 (Version 2)
Quarter: 2019Q1

REPORT INFORMATION
  Report Type: Spontaneous
  Country: JP (occurrence: JP)
  Receive Date: 20181101
  Receipt Date: 20190109
  Transmission Date: 20190417
  Serious: Yes (Life-Threatening, Other)
  Sender: FDA-Public Use
  Company Number: JP-BRISTOL-MYERS SQUIBB COMPANY-BMS-2018-102353

PATIENT
  Age: 60 Year
  Sex: Male
  Weight: 67 kg

DRUGS (1)
  1. OPDIVO [Suspect]
     Active Substance: NIVOLUMAB
     Indication: HEAD AND NECK CANCER
     Dosage: 200 MG, UNK
     Route: 041
     Dates: start: 20170714

REACTIONS (3)
  - Malignant neoplasm progression [Unknown]
  - Face oedema [Unknown]
  - Laryngeal obstruction [Unknown]

NARRATIVE: CASE EVENT DATE: 20170811
